FAERS Safety Report 4745281-X (Version None)
Quarter: 2005Q3

REPORT INFORMATION
  Report Type: 
  Country: None (occurrence: None)
  Receive Date: 20050812
  Receipt Date: 20050802
  Transmission Date: 20060218
  Serious: Yes (Hospitalization)
  Sender: FDA-Public Use
  Company Number: 107099ISR

PATIENT
  Age: 82 Year
  Sex: Female

DRUGS (15)
  1. ALLOPURINOL [Suspect]
     Indication: HYPERURICAEMIA
     Dosage: 150 MILLIGRAM, ORAL
     Route: 048
     Dates: start: 20050618, end: 20050621
  2. CALCITRIOL [Suspect]
     Indication: HYPOCALCAEMIA
     Dosage: 0.25 MILLIGRAM, ORAL
     Route: 048
     Dates: start: 20050618, end: 20050621
  3. TICLOPIDINE HYDROCHLORIDE [Concomitant]
  4. HUMULINE [Concomitant]
  5. FUROSEMIDE [Concomitant]
  6. ISOSORBIDE MONONITRATE [Concomitant]
  7. LERCANIDIPINE HYDROCHLORIDE [Concomitant]
  8. GABAPENTIN [Concomitant]
  9. CABERGOLINE [Concomitant]
  10. GLYCERYL TRINITRATE [Concomitant]
  11. METOPROLOL TARTRATE [Concomitant]
  12. CLONAZEPAM [Concomitant]
  13. CINNARIZINE [Concomitant]
  14. EPOGEN [Concomitant]
  15. BROMAZEPAM [Concomitant]

REACTIONS (4)
  - DERMATITIS [None]
  - DRUG INEFFECTIVE [None]
  - HYPERPYREXIA [None]
  - PRURITUS [None]
